FAERS Safety Report 15289855 (Version 3)
Quarter: 2020Q3

REPORT INFORMATION
  Report Type: Report from Study
  Country: JP (occurrence: JP)
  Receive Date: 20180817
  Receipt Date: 20181113
  Transmission Date: 20201105
  Serious: Yes (Life-Threatening, Hospitalization, Disabling)
  Sender: FDA-Public Use
  Company Number: JP-JNJFOC-20180225803

PATIENT
  Age: 86 Year
  Sex: Female
  Weight: 41 kg

DRUGS (26)
  1. MUCODYNE [Concomitant]
     Active Substance: CARBOCYSTEINE
     Route: 048
     Dates: start: 20171115, end: 20171122
  2. ALBUMIN TANNATE [Concomitant]
     Active Substance: ALBUMIN BOVINE\TANNIC ACID
     Indication: COLITIS ULCERATIVE
     Route: 048
     Dates: start: 20180416
  3. URIMOX [Concomitant]
     Indication: DRY SKIN
     Dosage: PRN
     Route: 061
     Dates: start: 20180225
  4. ELNEOPA NO.2 [Concomitant]
     Active Substance: AMINO ACIDS\DEXTROSE\ELECTROLYTES NOS\MINERALS\VITAMINS
     Indication: PARENTERAL NUTRITION
     Dosage: PRN
     Route: 042
     Dates: start: 20180223
  5. UREPEARL [Concomitant]
     Active Substance: UREA
     Indication: DRY SKIN
     Dosage: PRN
     Route: 061
     Dates: start: 20180225
  6. PENTASA [Concomitant]
     Active Substance: MESALAMINE
     Indication: COLITIS ULCERATIVE
     Route: 048
     Dates: start: 20160420, end: 20180216
  7. LOPERAMIDE HYDROCHLORIDE. [Concomitant]
     Active Substance: LOPERAMIDE HYDROCHLORIDE
     Route: 048
     Dates: start: 20160203, end: 20180216
  8. AMLODIPINE [Concomitant]
     Active Substance: AMLODIPINE BESYLATE
     Indication: HYPERTENSION
     Route: 048
     Dates: start: 20180312, end: 20180329
  9. THYRADIN?S [Concomitant]
     Active Substance: LEVOTHYROXINE
     Indication: HYPOTHYROIDISM
     Route: 048
     Dates: end: 20180216
  10. VOLTAREN [Concomitant]
     Active Substance: DICLOFENAC SODIUM
     Dosage: 3 FINGERTIP UNIT, AS NEEDED
     Route: 062
     Dates: start: 20161025, end: 20180216
  11. AZUNOL [SODIUM GUALENATE] [Concomitant]
     Active Substance: SODIUM GUALENATE
     Indication: PROPHYLAXIS
     Route: 061
     Dates: start: 20180307
  12. AZANIN [Concomitant]
     Active Substance: AZATHIOPRINE
     Indication: COLITIS ULCERATIVE
     Route: 048
     Dates: start: 20160420, end: 20171204
  13. LANSOPRAZOLE. [Concomitant]
     Active Substance: LANSOPRAZOLE
     Indication: GASTRITIS PROPHYLAXIS
     Route: 048
     Dates: start: 20160203, end: 20180216
  14. BONALON [Concomitant]
     Active Substance: ALENDRONATE SODIUM
     Indication: OSTEOPOROSIS PROPHYLAXIS
     Route: 048
     Dates: start: 20160203, end: 20180216
  15. ZOLPIDEM [Concomitant]
     Active Substance: ZOLPIDEM TARTRATE
     Route: 065
     Dates: start: 20171205, end: 20180113
  16. KARY UNI [Concomitant]
     Active Substance: PIRENOXINE
     Indication: CATARACT
     Route: 065
  17. USTEKINUMAB [Suspect]
     Active Substance: USTEKINUMAB
     Route: 058
  18. USTEKINUMAB [Suspect]
     Active Substance: USTEKINUMAB
     Indication: COLITIS ULCERATIVE
     Route: 058
     Dates: start: 20160223
  19. BEZAFIBRATE [Concomitant]
     Active Substance: BEZAFIBRATE
     Indication: HYPERLIPIDAEMIA
     Route: 048
     Dates: end: 20180216
  20. FERROUS SODIUM CITRATE [Concomitant]
     Active Substance: SODIUM FERROUS CITRATE
     Indication: ANAEMIA PROPHYLAXIS
     Route: 048
     Dates: start: 20160203, end: 20180216
  21. CLARITH [Concomitant]
     Active Substance: CLARITHROMYCIN
     Route: 048
     Dates: start: 20171115, end: 20171122
  22. MUCOSOLVAN L [Concomitant]
     Active Substance: AMBROXOL HYDROCHLORIDE
     Route: 048
     Dates: start: 20171115, end: 20171122
  23. MIYA?BM [Concomitant]
     Active Substance: CLOSTRIDIUM BUTYRICUM SPORES STRAIN M-55
     Indication: COLITIS ULCERATIVE
     Route: 048
     Dates: start: 20180416
  24. BIOFERMIN [Concomitant]
     Active Substance: DIETARY SUPPLEMENT\PROBIOTICS
     Indication: COLITIS ULCERATIVE
     Route: 048
     Dates: start: 20180311, end: 20180329
  25. BROTIZOLAM [Concomitant]
     Active Substance: BROTIZOLAM
     Indication: INSOMNIA
     Route: 048
     Dates: end: 20180216
  26. ADSORBIN [Concomitant]
     Active Substance: ALUMINUM SILICATE
     Indication: COLITIS ULCERATIVE
     Route: 048
     Dates: start: 20180416

REACTIONS (2)
  - Colitis ulcerative [Recovered/Resolved]
  - Listeriosis [Recovered/Resolved with Sequelae]

NARRATIVE: CASE EVENT DATE: 20180215
